FAERS Safety Report 16092446 (Version 2)
Quarter: 2019Q2

REPORT INFORMATION
  Report Type: Spontaneous
  Country: US (occurrence: US)
  Receive Date: 20190319
  Receipt Date: 20190410
  Transmission Date: 20190711
  Serious: No
  Sender: FDA-Public Use
  Company Number: US-009507513-1903USA003826

PATIENT
  Sex: Male

DRUGS (1)
  1. ASMANEX [Suspect]
     Active Substance: MOMETASONE FUROATE
     Dosage: 1 PUFF ORALLY DAILY
     Route: 055

REACTIONS (3)
  - No adverse event [Unknown]
  - Incorrect dose administered by product [Unknown]
  - Product quality issue [Unknown]

NARRATIVE: CASE EVENT DATE: 20190306
